FAERS Safety Report 5728860-2 (Version None)
Quarter: 2008Q2

REPORT INFORMATION
  Report Type: 
  Country: None (occurrence: None)
  Receive Date: 20080430
  Receipt Date: 20080416
  Transmission Date: 20081010
  Serious: Yes (Other)
  Sender: FDA-Public Use
  Company Number: E3810-01805-SPO-AU

PATIENT
  Age: 99 Year
  Sex: Female

DRUGS (2)
  1. RABEPRAZOLE SODIUM [Suspect]
     Dosage: 50 MG, ALTERNATE DAYS, ORAL
     Route: 048
  2. SPRYCEL [Suspect]
     Dosage: 1000 MG, ORAL
     Route: 048

REACTIONS (4)
  - DEHYDRATION [None]
  - HEPATIC FUNCTION ABNORMAL [None]
  - RENAL FAILURE [None]
  - VOMITING [None]
